FAERS Safety Report 8541373-8 (Version None)
Quarter: 2012Q3

REPORT INFORMATION
  Report Type: 
  Country: None (occurrence: None)
  Receive Date: 20120716
  Receipt Date: 20120702
  Transmission Date: 20120928
  Serious: Yes (Life-Threatening, Other)
  Sender: FDA-Public Use
  Company Number: JP-2012-15720

PATIENT
  Age: 74 Year
  Sex: Female

DRUGS (16)
  1. OLMESARTAN MEDOXOMIL [Concomitant]
  2. CARBENIN (BEGTAMIPRON, PANIPENEM) [Concomitant]
  3. ORODISPERSIBLE TABLET [Concomitant]
  4. CARVEDILOL [Concomitant]
  5. LASIX [Concomitant]
  6. LOPAMIRON (LOPAMIDOL) [Concomitant]
  7. HEPARIN SODIUM [Concomitant]
  8. PREDOPA (DOPAMINE HYDROCHLORIDE) [Concomitant]
  9. HANP (CARPERITIDE) [Concomitant]
  10. ASPIRIN [Concomitant]
  11. SAMSCA [Suspect]
     Indication: FLUID RETENTION
     Dosage: 15 MG, QAM, ORAL
     Route: 048
     Dates: start: 20120411, end: 20120413
  12. PLAVIX [Concomitant]
  13. PRECEDEX [Concomitant]
  14. AMLODIPINE BESYLATE [Concomitant]
  15. ADALAT [Concomitant]
  16. KAYEXALATE [Concomitant]

REACTIONS (7)
  - HAEMOGLOBIN DECREASED [None]
  - CARDIAC FAILURE [None]
  - PNEUMONIA [None]
  - RENAL FAILURE ACUTE [None]
  - ACUTE RESPIRATORY DISTRESS SYNDROME [None]
  - CONDITION AGGRAVATED [None]
  - CONTINUOUS HAEMODIAFILTRATION [None]
